FAERS Safety Report 5329918-2 (Version None)
Quarter: 2007Q2

REPORT INFORMATION
  Report Type: 
  Country: None (occurrence: None)
  Receive Date: 20070521
  Receipt Date: 20070508
  Transmission Date: 20071010
  Serious: Yes (Death, Life-Threatening, Hospitalization, Other)
  Sender: FDA-Public Use
  Company Number: US-JNJFOC-20051201806

PATIENT
  Sex: Male
  Weight: 44.3 kg

DRUGS (8)
  1. REMICADE [Suspect]
     Route: 042
  2. REMICADE [Suspect]
     Route: 042
  3. REMICADE [Suspect]
     Route: 042
  4. REMICADE [Suspect]
     Indication: CROHN'S DISEASE
     Route: 042
  5. IMURAN [Concomitant]
     Indication: CROHN'S DISEASE
  6. PENTASA [Concomitant]
  7. CIPRO [Concomitant]
  8. 6-MP [Concomitant]
     Indication: CROHN'S DISEASE

REACTIONS (11)
  - ALANINE AMINOTRANSFERASE INCREASED [None]
  - ASPARTATE AMINOTRANSFERASE INCREASED [None]
  - BONE MARROW FAILURE [None]
  - GASTROINTESTINAL DISORDER [None]
  - HEPATOSPLENIC T-CELL LYMPHOMA [None]
  - HEPATOSPLENOMEGALY [None]
  - PANCYTOPENIA [None]
  - RASH [None]
  - THROMBOCYTOPENIA [None]
  - THROMBOSIS [None]
  - WHITE BLOOD CELL COUNT DECREASED [None]
